FAERS Safety Report 9300428 (Version 2)
Quarter: 2013Q2

REPORT INFORMATION
  Report Type: Spontaneous
  Country: US (occurrence: US)
  Receive Date: 20130521
  Receipt Date: 20130528
  Transmission Date: 20140414
  Serious: Yes (Disabling)
  Sender: FDA-Public Use
  Company Number: US-BAYER-2013-062246

PATIENT
  Sex: Female

DRUGS (5)
  1. STAXYN (FDT/ODT) [Suspect]
     Dosage: UNK
  2. NORTRIPTYLINE [Concomitant]
     Indication: ANXIETY
  3. XANAX [Concomitant]
     Indication: ANXIETY
  4. LISINOPRIL [Concomitant]
     Indication: HYPERTENSION
  5. JANUMET [Concomitant]
     Indication: DIABETES MELLITUS

REACTIONS (1)
  - Dizziness [Not Recovered/Not Resolved]
